FAERS Safety Report 23942392 (Version 1)
Quarter: 2024Q2

REPORT INFORMATION
  Report Type: Spontaneous
  Country: US (occurrence: US)
  Receive Date: 20240605
  Receipt Date: 20240605
  Transmission Date: 20240716
  Serious: No
  Sender: FDA-Public Use
  Company Number: US-REGENERON PHARMACEUTICALS, INC.-2024-068674

PATIENT
  Sex: Male

DRUGS (3)
  1. EYLEA HD [Suspect]
     Active Substance: AFLIBERCEPT
     Indication: Retinal vein occlusion
     Dosage: 8 MG,(0.07ML OF 114.3MG/ML SOL) Q4W INTO LEFT EYE, FORMULATION: EYLEA HD
     Route: 031
     Dates: start: 20230926
  2. EYLEA HD [Suspect]
     Active Substance: AFLIBERCEPT
     Indication: Macular oedema
  3. EYLEA HD [Suspect]
     Active Substance: AFLIBERCEPT
     Indication: Lipid metabolism disorder

REACTIONS (2)
  - Off label use [Not Recovered/Not Resolved]
  - Drug effective for unapproved indication [Not Recovered/Not Resolved]

NARRATIVE: CASE EVENT DATE: 20230101
